FAERS Safety Report 8799043 (Version 1)
Quarter: 2012Q4

REPORT INFORMATION
  Report Type: 
  Country: CA (occurrence: CA)
  Receive Date: 20120920
  Receipt Date: 20120920
  Transmission Date: 20130627
  Serious: Yes (Other)
  Sender: FDA-Public Use
  Company Number: CA-ASTRAZENECA-2012SE71180

PATIENT
  Sex: Female

DRUGS (4)
  1. FASLODEX [Suspect]
     Route: 030
  2. AROMASIN [Suspect]
     Route: 065
  3. AFINITOR [Suspect]
     Route: 065
  4. FEMARA [Suspect]
     Route: 065

REACTIONS (2)
  - Breast cancer [Unknown]
  - Neoplasm progression [Unknown]
